FAERS Safety Report 5333577-2 (Version None)
Quarter: 2007Q2

REPORT INFORMATION
  Report Type: 
  Country: None (occurrence: None)
  Receive Date: 20070308
  Receipt Date: 20061206
  Transmission Date: 20071010
  Serious: No
  Sender: FDA-Public Use
  Company Number: 2006-BP-13371BP

PATIENT
  Age: 60 Year
  Sex: Female
  Weight: 80.74 kg

DRUGS (14)
  1. SPIRIVA [Suspect]
     Indication: CHRONIC OBSTRUCTIVE PULMONARY DISEASE
     Dosage: 18 MCG (18 MCG, 1 IN 1 D), IH
     Route: 055
     Dates: start: 20061026, end: 20061026
  2. LORTAB [Concomitant]
  3. VALIUM [Concomitant]
  4. CAFERGOT [Concomitant]
  5. TOPROL-XL [Concomitant]
  6. PLENDIL [Concomitant]
  7. PROVENTIL HFA (SALBUTAMOL) [Concomitant]
  8. REGLAN [Concomitant]
  9. MVT (MULTIVITAMINS) [Concomitant]
  10. LISINOPRIL [Concomitant]
  11. ANTIVERT [Concomitant]
  12. PREVACID [Concomitant]
  13. PLAVIX [Concomitant]
  14. CRESTOR [Concomitant]

REACTIONS (6)
  - ANGIOEDEMA [None]
  - BRADYCARDIA [None]
  - DYSPNOEA [None]
  - FLUSHING [None]
  - PRESYNCOPE [None]
  - TACHYCARDIA [None]
